FAERS Safety Report 19350243 (Version 1)
Quarter: 2021Q2

REPORT INFORMATION
  Report Type: Spontaneous
  Country: US (occurrence: US)
  Receive Date: 20210529
  Receipt Date: 20210529
  Transmission Date: 20210717
  Serious: Yes (Disabling)
  Sender: FDA-Public Use
  Company Number: None

PATIENT
  Sex: Female

DRUGS (1)
  1. HYDROCORTISONE. [Suspect]
     Active Substance: HYDROCORTISONE

REACTIONS (19)
  - Asthenia [None]
  - Bedridden [None]
  - Hormone level abnormal [None]
  - Condition aggravated [None]
  - Steroid withdrawal syndrome [None]
  - Sensitive skin [None]
  - Chills [None]
  - Pain [None]
  - Pruritus [None]
  - Muscle twitching [None]
  - Skin exfoliation [None]
  - Loss of therapeutic response [None]
  - Somnolence [None]
  - Wound [None]
  - Alopecia [None]
  - Haemorrhage [None]
  - Skin weeping [None]
  - Eczema [None]
  - Joint swelling [None]

NARRATIVE: CASE EVENT DATE: 20191219
